FAERS Safety Report 15182842 (Version 1)
Quarter: 2018Q3

REPORT INFORMATION
  Report Type: Spontaneous
  Country: ES (occurrence: ES)
  Receive Date: 20180723
  Receipt Date: 20180723
  Transmission Date: 20181010
  Serious: Yes (Death, Hospitalization)
  Sender: FDA-Public Use
  Company Number: ES-BAYER-2018-137581

PATIENT
  Age: 82 Year
  Sex: Female

DRUGS (3)
  1. APIXABAN [Interacting]
     Active Substance: APIXABAN
     Indication: ISCHAEMIC STROKE
     Dosage: 7.5 MG, UNK
     Route: 048
     Dates: start: 20180406, end: 20180408
  2. ADIRO 100 MG [Suspect]
     Active Substance: ASPIRIN
     Indication: ISCHAEMIC STROKE
     Dosage: 100 MG, UNK
     Route: 048
     Dates: start: 20180404, end: 20180408
  3. ENOXAPARIN SODIUM. [Interacting]
     Active Substance: ENOXAPARIN SODIUM
     Dosage: 20 MG, UNK
     Route: 058
     Dates: start: 20180327, end: 20180406

REACTIONS (1)
  - Haemorrhagic transformation stroke [Fatal]

NARRATIVE: CASE EVENT DATE: 20180407
